FAERS Safety Report 17644178 (Version 1)
Quarter: 2020Q2

REPORT INFORMATION
  Report Type: Report from Study
  Country: None (occurrence: US)
  Receive Date: 20200408
  Receipt Date: 20200408
  Transmission Date: 20200713
  Serious: No
  Sender: FDA-Public Use
  Company Number: US-BIOVITRUM-2019US1989

PATIENT
  Sex: Male

DRUGS (1)
  1. KINERET [Suspect]
     Active Substance: ANAKINRA
     Indication: STILL^S DISEASE
     Route: 058
     Dates: start: 20190529

REACTIONS (8)
  - Off label use [Unknown]
  - Product dose omission [Recovered/Resolved]
  - Peripheral swelling [Unknown]
  - Paraesthesia [Unknown]
  - Fatigue [Unknown]
  - Heart rate irregular [Unknown]
  - Injection site bruising [Unknown]
  - Joint swelling [Unknown]
